FAERS Safety Report 7001256-1 (Version None)
Quarter: 2010Q3

REPORT INFORMATION
  Report Type: 
  Country: None (occurrence: None)
  Receive Date: 20100920
  Receipt Date: 20100607
  Transmission Date: 20110219
  Serious: No
  Sender: FDA-Public Use
  Company Number: US-ASTRAZENECA-2010SE15706

PATIENT
  Sex: Female

DRUGS (17)
  1. SEROQUEL XR [Suspect]
     Indication: NARCOLEPSY
     Route: 048
  2. SEROQUEL XR [Suspect]
     Indication: BIPOLAR DISORDER
     Route: 048
  3. XYREM [Suspect]
     Indication: NARCOLEPSY
     Route: 065
  4. SYMBICORT [Concomitant]
  5. ADDERALL 10 [Concomitant]
  6. CYMBALTA [Concomitant]
  7. CYMBALTA [Concomitant]
  8. VIT D [Concomitant]
  9. LAMICTAL [Concomitant]
  10. ATIVAN [Concomitant]
  11. CONCERTA [Concomitant]
  12. PROVIGIL [Concomitant]
  13. PROAIR HFA [Concomitant]
  14. ZOCOR [Concomitant]
  15. CARAFATE [Concomitant]
  16. SPIRIVA [Concomitant]
  17. TOPAMAX [Concomitant]

REACTIONS (4)
  - CONFUSIONAL STATE [None]
  - DRUG ABUSE [None]
  - LETHARGY [None]
  - SOMNOLENCE [None]
